FAERS Safety Report 19269509 (Version 1)
Quarter: 2021Q2

REPORT INFORMATION
  Report Type: Spontaneous
  Country: US (occurrence: US)
  Receive Date: 20210518
  Receipt Date: 20210518
  Transmission Date: 20210717
  Serious: No
  Sender: FDA-Public Use
  Company Number: None

PATIENT
  Sex: Female
  Weight: 78.93 kg

DRUGS (1)
  1. LUMASON [Suspect]
     Active Substance: SULFUR HEXAFLUORIDE

REACTIONS (6)
  - Tachycardia [None]
  - Dyspnoea [None]
  - Hypotension [None]
  - Hypoaesthesia [None]
  - Hypersensitivity [None]
  - Chest pain [None]
